FAERS Safety Report 9189972 (Version 1)
Quarter: 2013Q1

REPORT INFORMATION
  Report Type: Spontaneous
  Country: US (occurrence: None)
  Receive Date: 20130322
  Receipt Date: 20130322
  Transmission Date: 20140127
  Serious: No
  Sender: FDA-Public Use
  Company Number: None

PATIENT
  Age: 35 Year
  Sex: Female
  Weight: 99.79 kg

DRUGS (1)
  1. STRATERRA [Suspect]
     Indication: ATTENTION DEFICIT/HYPERACTIVITY DISORDER
     Route: 048
     Dates: start: 20130321, end: 20130321

REACTIONS (10)
  - Nausea [None]
  - Vomiting [None]
  - Flushing [None]
  - Fatigue [None]
  - Erythema [None]
  - Paraesthesia [None]
  - Dry mouth [None]
  - Lacrimation increased [None]
  - Confusional state [None]
  - Cognitive disorder [None]
